FAERS Safety Report 4714952-3 (Version None)
Quarter: 2005Q3

REPORT INFORMATION
  Report Type: 
  Country: None (occurrence: None)
  Receive Date: 20050715
  Receipt Date: 20031217
  Transmission Date: 20060218
  Serious: Yes (Hospitalization)
  Sender: FDA-Public Use
  Company Number: BE-JNJFOC-20031204463

PATIENT
  Age: 15 Month
  Sex: Female

DRUGS (2)
  1. PROPULSID [Suspect]
     Route: 048
  2. LOSEC [Concomitant]
     Route: 065

REACTIONS (4)
  - BRONCHITIS [None]
  - CONDITION AGGRAVATED [None]
  - OESOPHAGOGASTRIC FUNDOPLASTY [None]
  - VIRAL INFECTION [None]
